FAERS Safety Report 12580779 (Version 1)
Quarter: 2016Q3

REPORT INFORMATION
  Report Type: Spontaneous
  Country: GB (occurrence: GB)
  Receive Date: 20160721
  Receipt Date: 20160721
  Transmission Date: 20161109
  Serious: Yes (Hospitalization, Other)
  Sender: FDA-Public Use
  Company Number: GB-PFIZER INC-2015136450

PATIENT
  Age: 60 Year
  Sex: Female

DRUGS (3)
  1. SIMPONI [Suspect]
     Active Substance: GOLIMUMAB
     Dosage: UNK
     Route: 058
     Dates: end: 20150405
  2. SIMPONI [Suspect]
     Active Substance: GOLIMUMAB
     Dosage: UNK
     Route: 058
     Dates: start: 20150417
  3. METHOTREXATE SODIUM. [Suspect]
     Active Substance: METHOTREXATE SODIUM
     Dosage: UNK

REACTIONS (10)
  - Constipation [Recovered/Resolved]
  - Arthralgia [Unknown]
  - Drug hypersensitivity [Unknown]
  - Vomiting [Unknown]
  - Urinary retention [Unknown]
  - Urinary tract infection [Not Recovered/Not Resolved]
  - Malaise [Unknown]
  - Abdominal distension [Unknown]
  - Urine output decreased [Unknown]
  - Rash pruritic [Recovering/Resolving]

NARRATIVE: CASE EVENT DATE: 201504
